FAERS Safety Report 6221027-3 (Version None)
Quarter: 2009Q2

REPORT INFORMATION
  Report Type: 
  Country: None (occurrence: None)
  Receive Date: 20090610
  Receipt Date: 20090603
  Transmission Date: 20091009
  Serious: Yes (Other)
  Sender: FDA-Public Use
  Company Number: A0788595A

PATIENT
  Sex: Female

DRUGS (1)
  1. PAROXETINE HCL [Suspect]
     Indication: ANXIETY
     Dosage: 20MG UNKNOWN
     Route: 048

REACTIONS (15)
  - CHEST PAIN [None]
  - CONVULSION [None]
  - DISSOCIATIVE IDENTITY DISORDER [None]
  - DIZZINESS [None]
  - DYSKINESIA [None]
  - DYSPNOEA [None]
  - FEAR [None]
  - HALLUCINATION [None]
  - HYPERHIDROSIS [None]
  - MIGRAINE [None]
  - NAUSEA [None]
  - PAIN [None]
  - PRURITUS [None]
  - SYNCOPE [None]
  - TIC [None]
